APPROVED DRUG PRODUCT: VALGANCICLOVIR HYDROCHLORIDE
Active Ingredient: VALGANCICLOVIR HYDROCHLORIDE
Strength: 50MG/ML
Dosage Form/Route: FOR SOLUTION;ORAL
Application: A210169 | Product #001 | TE Code: AB
Applicant: MSN LABORATORIES PRIVATE LTD
Approved: Feb 17, 2022 | RLD: No | RS: No | Type: RX